FAERS Safety Report 7799631-0 (Version None)
Quarter: 2011Q4

REPORT INFORMATION
  Report Type: 
  Country: None (occurrence: None)
  Receive Date: 20111006
  Receipt Date: 20111002
  Transmission Date: 20120403
  Serious: Yes (Hospitalization, Other)
  Sender: FDA-Public Use
  Company Number: KR-ROXANE LABORATORIES, INC.-2011-RO-01384RO

PATIENT
  Age: 49 Year
  Sex: Female

DRUGS (1)
  1. LIDOCAINE [Suspect]
     Indication: LOCAL ANAESTHESIA
     Dosage: 15 MG

REACTIONS (6)
  - NAUSEA [None]
  - MYALGIA [None]
  - DRUG ADMINISTRATION ERROR [None]
  - MALAISE [None]
  - GRAND MAL CONVULSION [None]
  - NEUROTOXICITY [None]
